FAERS Safety Report 16280393 (Version 1)
Quarter: 2019Q2

REPORT INFORMATION
  Report Type: Spontaneous
  Country: FR (occurrence: FR)
  Receive Date: 20190507
  Receipt Date: 20190507
  Transmission Date: 20190711
  Serious: Yes (Life-Threatening, Other)
  Sender: FDA-Public Use
  Company Number: FR-AUROBINDO-AUR-APL-2019-022275

PATIENT

DRUGS (7)
  1. ALIMTA [Suspect]
     Active Substance: PEMETREXED DISODIUM
     Indication: BRAIN CANCER METASTATIC
     Dosage: 825 MILLIGRAM, EVERY 21 DAY
     Route: 042
     Dates: start: 20190322, end: 20190322
  2. ESOMEPRAZOLE. [Suspect]
     Active Substance: ESOMEPRAZOLE MAGNESIUM
     Indication: GASTRIC ULCER
     Dosage: 40 MILLIGRAM, DAILY
     Route: 048
     Dates: start: 20190212
  3. CARBOPLATIN ACCORD [Suspect]
     Active Substance: CARBOPLATIN
     Indication: BRAIN CANCER METASTATIC
     Dosage: 700 MILLIGRAM, EVERY 21 DAY
     Route: 042
     Dates: start: 20190322, end: 20190322
  4. IMOVANE [Suspect]
     Active Substance: ZOPICLONE
     Indication: INSOMNIA
     Dosage: 1 DOSAGE FORM, DAILY
     Route: 048
     Dates: start: 20190212, end: 20190402
  5. BACTRIM [Suspect]
     Active Substance: SULFAMETHOXAZOLE\TRIMETHOPRIM
     Indication: PROPHYLAXIS
     Dosage: 1 CP ON MONDAYS, WEDNESDAYS AND FRIDAYS
     Route: 048
     Dates: start: 20190212
  6. CORTANCYL [Suspect]
     Active Substance: PREDNISONE
     Indication: BRAIN CANCER METASTATIC
     Dosage: 40 MILLIGRAM, DAILY
     Route: 048
     Dates: start: 20190212, end: 20190328
  7. KEPPRA [Suspect]
     Active Substance: LEVETIRACETAM
     Indication: EPILEPSY
     Dosage: 2 DOSAGE FORM, DAILY
     Route: 048
     Dates: start: 20190322

REACTIONS (1)
  - Meningitis herpes [Recovering/Resolving]

NARRATIVE: CASE EVENT DATE: 20190328
